FAERS Safety Report 12645089 (Version 2)
Quarter: 2016Q3

REPORT INFORMATION
  Report Type: Spontaneous
  Country: US (occurrence: US)
  Receive Date: 20160811
  Receipt Date: 20160915
  Transmission Date: 20161109
  Serious: Yes (Congenital Anomaly, Other)
  Sender: FDA-Public Use
  Company Number: PHEH2016US020144

PATIENT
  Sex: Female

DRUGS (2)
  1. ONDANSETRON. [Suspect]
     Active Substance: ONDANSETRON
     Indication: FOETAL EXPOSURE DURING PREGNANCY
     Dosage: MOTHER^S DOSE: 8 MG, UNK
     Route: 064
  2. ZOFRAN [Suspect]
     Active Substance: ONDANSETRON HYDROCHLORIDE
     Indication: FOETAL EXPOSURE DURING PREGNANCY
     Route: 064

REACTIONS (13)
  - Anxiety [Unknown]
  - Neonatal tachypnoea [Unknown]
  - Injury [Unknown]
  - Ventricular septal defect [Unknown]
  - Pain [Unknown]
  - Patent ductus arteriosus [Unknown]
  - Foetal exposure during pregnancy [Unknown]
  - Failure to thrive [Unknown]
  - Heart disease congenital [Unknown]
  - Cardiac failure congestive [Unknown]
  - Atrial septal defect [Unknown]
  - Emotional distress [Unknown]
  - Developmental delay [Unknown]
